FAERS Safety Report 16245019 (Version 1)
Quarter: 2019Q2

REPORT INFORMATION
  Report Type: Spontaneous
  Country: CH (occurrence: CH)
  Receive Date: 20190426
  Receipt Date: 20190426
  Transmission Date: 20190711
  Serious: Yes (Other)
  Sender: FDA-Public Use
  Company Number: CH-GILEAD-2019-0402317

PATIENT
  Age: 32 Year
  Sex: Female

DRUGS (4)
  1. TRUVADA [Suspect]
     Active Substance: EMTRICITABINE\TENOFOVIR DISOPROXIL FUMARATE
     Indication: HIV TEST
     Dosage: 1 DOSAGE FORM, QD
     Route: 048
     Dates: start: 20190208
  2. AVONEX [Suspect]
     Active Substance: INTERFERON BETA-1A
     Indication: MULTIPLE SCLEROSIS
     Dosage: 1 DOSAGE FORM, Q1WK, EXACT DATE OF LAST INJECTION UNKNOWN
     Route: 030
     Dates: end: 201901
  3. GENVOYA [Suspect]
     Active Substance: COBICISTAT\ELVITEGRAVIR\EMTRICITABINE\TENOFOVIR ALAFENAMIDE FUMARATE
     Indication: HIV TEST
     Dosage: UNK
     Route: 065
     Dates: end: 201902
  4. ISENTRESS [Suspect]
     Active Substance: RALTEGRAVIR POTASSIUM
     Indication: HIV TEST
     Dosage: (600 MG 2X/J), QD
     Route: 048
     Dates: start: 20190208

REACTIONS (2)
  - Abortion spontaneous incomplete [Recovered/Resolved]
  - Exposure during pregnancy [Recovered/Resolved]

NARRATIVE: CASE EVENT DATE: 20190322
